FAERS Safety Report 9422293 (Version 5)
Quarter: 2014Q3

REPORT INFORMATION
  Report Type: Spontaneous
  Country: US (occurrence: US)
  Receive Date: 20130726
  Receipt Date: 20140821
  Transmission Date: 20150326
  Serious: No
  Sender: FDA-Public Use
  Company Number: US-PFIZER INC-2013215973

PATIENT
  Age: 63 Year
  Sex: Female

DRUGS (4)
  1. ZOFRAN [Concomitant]
     Active Substance: ONDANSETRON HYDROCHLORIDE
     Indication: NAUSEA
     Dosage: 8 MG, Q 8 HOURLY  AS NEEDED
     Dates: start: 20120901
  2. ZOFRAN [Concomitant]
     Active Substance: ONDANSETRON HYDROCHLORIDE
     Indication: VOMITING
  3. XALKORI [Suspect]
     Active Substance: CRIZOTINIB
     Indication: LUNG ADENOCARCINOMA
     Dosage: 250 MG, 2X/DAY
     Route: 048
     Dates: start: 20130715
  4. XALKORI [Suspect]
     Active Substance: CRIZOTINIB
     Dosage: 200 MG, 2X/DAY
     Route: 048

REACTIONS (11)
  - Dysgeusia [Recovered/Resolved]
  - Nausea [Recovered/Resolved]
  - Thyroid function test abnormal [Unknown]
  - Decreased appetite [Not Recovered/Not Resolved]
  - Eye disorder [Recovered/Resolved]
  - Abdominal discomfort [Recovering/Resolving]
  - Photopsia [Recovering/Resolving]
  - Vitreous floaters [Recovering/Resolving]
  - Fatigue [Unknown]
  - Swelling [Unknown]
  - Abdominal pain upper [Recovering/Resolving]

NARRATIVE: CASE EVENT DATE: 2013
